FAERS Safety Report 11031158 (Version 1)
Quarter: 2015Q2

REPORT INFORMATION
  Report Type: Spontaneous
  Country: US (occurrence: US)
  Receive Date: 20150415
  Receipt Date: 20150415
  Transmission Date: 20150821
  Serious: No
  Sender: FDA-Public Use
  Company Number: US-ASTRAZENECA-2014SE28145

PATIENT
  Age: 58 Year
  Sex: Female

DRUGS (2)
  1. PRILOSEC OTC [Suspect]
     Active Substance: OMEPRAZOLE MAGNESIUM
     Indication: OESOPHAGEAL IRRITATION
     Route: 048
     Dates: start: 20140412, end: 20140416
  2. ANTI-ASTHMATICS [Concomitant]
     Active Substance: UNSPECIFIED INGREDIENT
     Dosage: UNKNOWN

REACTIONS (3)
  - Faeces soft [Not Recovered/Not Resolved]
  - Gastrointestinal pain [Recovered/Resolved]
  - Abdominal pain upper [Recovered/Resolved]
